FAERS Safety Report 12530678 (Version 1)
Quarter: 2016Q3

REPORT INFORMATION
  Report Type: Spontaneous
  Country: FR (occurrence: FR)
  Receive Date: 20160706
  Receipt Date: 20160706
  Transmission Date: 20161109
  Serious: Yes (Death)
  Sender: FDA-Public Use
  Company Number: FR-PFIZER INC-2016317007

PATIENT
  Age: 70 Year
  Sex: Female

DRUGS (1)
  1. SUTENT [Suspect]
     Active Substance: SUNITINIB MALATE
     Indication: RENAL CANCER
     Dosage: 37.5 MG 4 WEEKS ON 2 WEEKS OFF
     Route: 048
     Dates: start: 201511, end: 20160525

REACTIONS (4)
  - Ventricular dyskinesia [Fatal]
  - Syncope [Fatal]
  - Electrocardiogram repolarisation abnormality [Fatal]
  - Stress cardiomyopathy [Fatal]

NARRATIVE: CASE EVENT DATE: 20160525
